FAERS Safety Report 7771648-1 (Version None)
Quarter: 2011Q3

REPORT INFORMATION
  Report Type: 
  Country: None (occurrence: None)
  Receive Date: 20110922
  Receipt Date: 20100803
  Transmission Date: 20111222
  Serious: Yes (Other)
  Sender: FDA-Public Use
  Company Number: US-ASTRAZENECA-2007UW26480

PATIENT
  Age: 654 Month
  Sex: Female
  Weight: 77.1 kg

DRUGS (2)
  1. SEROQUEL [Suspect]
     Indication: SLEEP DISORDER
     Dosage: 100MG - 400MG
     Route: 048
     Dates: start: 20040101, end: 20051201
  2. SEROQUEL [Suspect]
     Indication: STRESS
     Dosage: 100MG - 400MG
     Route: 048
     Dates: start: 20040101, end: 20051201

REACTIONS (3)
  - DIABETES MELLITUS [None]
  - DIABETIC KETOACIDOSIS [None]
  - DIABETES MELLITUS INADEQUATE CONTROL [None]
